FAERS Safety Report 8828781 (Version 2)
Quarter: 2014Q3

REPORT INFORMATION
  Report Type: Spontaneous
  Country: FR (occurrence: FR)
  Receive Date: 20121008
  Receipt Date: 20140703
  Transmission Date: 20150326
  Serious: Yes (Death, Hospitalization)
  Sender: FDA-Public Use
  Company Number: FR-ASTRAZENECA-2012SE76333

PATIENT
  Age: 29311 Day
  Sex: Male

DRUGS (14)
  1. XEROQUEL [Suspect]
     Active Substance: QUETIAPINE FUMARATE
     Route: 048
     Dates: start: 20120430, end: 20120502
  2. VALIUM [Concomitant]
     Active Substance: DIAZEPAM
     Dates: end: 20120429
  3. IMOVANE [Concomitant]
     Active Substance: ZOPICLONE
  4. RISPERDAL [Concomitant]
     Active Substance: RISPERIDONE
     Route: 048
     Dates: start: 20120430, end: 20120503
  5. MOTILIUM [Suspect]
     Active Substance: DOMPERIDONE
     Route: 048
     Dates: start: 20120505, end: 20120505
  6. MOTILIUM [Suspect]
     Active Substance: DOMPERIDONE
     Route: 048
     Dates: end: 20120504
  7. CORDARONE [Suspect]
     Active Substance: AMIODARONE HYDROCHLORIDE
     Route: 048
  8. VALIUM [Concomitant]
     Active Substance: DIAZEPAM
     Dates: start: 20120430
  9. TAHOR [Concomitant]
     Active Substance: ATORVASTATIN CALCIUM
     Dates: start: 20120417
  10. EBIXA [Concomitant]
     Active Substance: MEMANTINE HYDROCHLORIDE
     Route: 048
  11. CRESTOR [Concomitant]
     Active Substance: ROSUVASTATIN CALCIUM
     Route: 048
     Dates: end: 20120416
  12. TIAPRIDAL [Concomitant]
     Active Substance: TIAPRIDE HYDROCHLORIDE
     Dates: end: 20120430
  13. XEROQUEL [Suspect]
     Active Substance: QUETIAPINE FUMARATE
     Route: 048
     Dates: end: 20120429
  14. TERCIAN [Concomitant]
     Active Substance: CYAMEMAZINE
     Route: 048
     Dates: start: 20120430, end: 20120502

REACTIONS (7)
  - Tachycardia [Unknown]
  - Cardiac failure acute [Recovered/Resolved]
  - Pneumonia aspiration [Fatal]
  - Sepsis [Fatal]
  - Vomiting [Unknown]
  - Electrocardiogram QT prolonged [Unknown]
  - Oxygen saturation decreased [Unknown]

NARRATIVE: CASE EVENT DATE: 20120504
